FAERS Safety Report 7282301-5 (Version None)
Quarter: 2010Q4

REPORT INFORMATION
  Report Type: 
  Country: None (occurrence: None)
  Receive Date: 20101221
  Receipt Date: 20100913
  Transmission Date: 20110411
  Serious: Yes (Hospitalization)
  Sender: FDA-Public Use
  Company Number: WAES 1009USA02622

PATIENT
  Age: 67 Year
  Sex: Female
  Weight: 69.8539 kg

DRUGS (11)
  1. JANUVIA [Suspect]
     Indication: DIABETES MELLITUS
     Dosage: 100 MG/DAILY/PO
     Route: 048
  2. ASPIRIN [Concomitant]
  3. CALCIUM [Concomitant]
  4. COD LIVER OIL [Concomitant]
  5. FOSINOPRIL SODIUM [Concomitant]
  6. GLYBURIDE [Concomitant]
  7. HYDROCHLOROTHIAZIDE [Concomitant]
  8. METFORMIN HCL [Concomitant]
  9. PRAVASTATIN SODIUM [Concomitant]
  10. UBIDECARENONE [Concomitant]
  11. VITAMIN D [Concomitant]

REACTIONS (1)
  - PANCREATITIS [None]
